FAERS Safety Report 6584853-7 (Version None)
Quarter: 2010Q1

REPORT INFORMATION
  Report Type: 
  Country: None (occurrence: None)
  Receive Date: 20100217
  Receipt Date: 20100208
  Transmission Date: 20100710
  Serious: Yes (Death)
  Sender: FDA-Public Use
  Company Number: CA-NOVOPROD-300541

PATIENT
  Age: 83 Year
  Sex: Female

DRUGS (15)
  1. NIASTASE [Suspect]
     Indication: AORTIC VALVE REPLACEMENT
     Dosage: 2.4 MG, UNK
     Route: 042
     Dates: start: 20091001
  2. NIASTASE [Suspect]
     Dosage: 2.4 UNK, UNK
     Route: 042
     Dates: start: 20091004
  3. CEFAZOLIN [Concomitant]
  4. TYLENOL (CAPLET) [Concomitant]
  5. MIDAZOLAM HCL [Concomitant]
  6. MORPHINE [Concomitant]
  7. ONDANSETRON [Concomitant]
  8. FENTANYL                           /00174602/ [Concomitant]
  9. RANITIDINE [Concomitant]
  10. METOCLOPRAMIDE [Concomitant]
  11. PIPERACILLIN W/TAZOBACTAM [Concomitant]
  12. PHENYLEPHRINE HCL [Concomitant]
  13. CISATRACURIUM BESYLATE [Concomitant]
  14. LANSOPRAZOLE [Concomitant]
  15. OCULAR LUBRICANT                   /00445101/ [Concomitant]

REACTIONS (2)
  - CEREBELLAR INFARCTION [None]
  - CEREBRAL INFARCTION [None]
